FAERS Safety Report 8825708 (Version 5)
Quarter: 2014Q1

REPORT INFORMATION
  Report Type: Spontaneous
  Country: US (occurrence: US)
  Receive Date: 20121004
  Receipt Date: 20140211
  Transmission Date: 20141002
  Serious: Yes (Hospitalization, Disabling, Other)
  Sender: FDA-Public Use
  Company Number: US-009507513-1202USA02290

PATIENT
  Sex: Female
  Weight: 54.42 kg

DRUGS (3)
  1. FOSAMAX [Suspect]
     Indication: OSTEOPOROSIS
     Dosage: 70 MG, QW
     Route: 048
     Dates: start: 2002, end: 2009
  2. FOSAMAX [Suspect]
     Indication: OSTEOPENIA
     Dosage: 10 MG, QD
     Route: 048
     Dates: start: 19980728
  3. FOSAMAX PLUS D [Suspect]
     Indication: OSTEOPOROSIS
     Route: 048

REACTIONS (15)
  - Femur fracture [Not Recovered/Not Resolved]
  - Hip arthroplasty [Not Recovered/Not Resolved]
  - Malignant melanoma [Unknown]
  - Basal cell carcinoma [Unknown]
  - Osteoarthritis [Unknown]
  - Skin neoplasm excision [Unknown]
  - Foot fracture [Unknown]
  - Kyphosis [Unknown]
  - Irritable bowel syndrome [Unknown]
  - Blood disorder [Unknown]
  - Diverticulum intestinal [Not Recovered/Not Resolved]
  - Wrist fracture [Unknown]
  - Neuroma [Unknown]
  - Neurectomy [Unknown]
  - Headache [Recovered/Resolved]
